FAERS Safety Report 10224289 (Version 1)
Quarter: 2014Q2

REPORT INFORMATION
  Report Type: Spontaneous
  Country: US (occurrence: US)
  Receive Date: 20140609
  Receipt Date: 20140609
  Transmission Date: 20141212
  Serious: No
  Sender: FDA-Public Use
  Company Number: US-PFIZER INC-2014154690

PATIENT
  Age: 69 Year
  Sex: Male
  Weight: 86.17 kg

DRUGS (3)
  1. GABAPENTIN [Suspect]
     Indication: SCIATICA
     Dosage: UNK
  2. LORTAB [Concomitant]
     Indication: PAIN
     Dosage: UNK
  3. FLEXERIL [Concomitant]
     Indication: ARTHRITIS
     Dosage: UNK

REACTIONS (3)
  - Insomnia [Unknown]
  - Restlessness [Unknown]
  - Drug ineffective [Unknown]
